FAERS Safety Report 26007293 (Version 1)
Quarter: 2025Q4

REPORT INFORMATION
  Report Type: Spontaneous
  Country: GB (occurrence: GB)
  Receive Date: 20251106
  Receipt Date: 20251106
  Transmission Date: 20260118
  Serious: Yes (Hospitalization, Other)
  Sender: GLAXOSMITHKLINE
  Company Number: GB-GSK-GB2025EME138291

PATIENT
  Age: 64 Year

DRUGS (2)
  1. JEMPERLI [Suspect]
     Active Substance: DOSTARLIMAB-GXLY
     Indication: Endometrial adenocarcinoma
     Dosage: UNK
  2. TAXOL [Suspect]
     Active Substance: PACLITAXEL
     Indication: Endometrial cancer

REACTIONS (9)
  - Rash [Unknown]
  - Pulmonary oedema [Unknown]
  - Colitis [Unknown]
  - Hepatitis [Unknown]
  - Platelet count decreased [Unknown]
  - Diarrhoea [Unknown]
  - Pruritus [Unknown]
  - Chills [Unknown]
  - Body temperature abnormal [Unknown]
